FAERS Safety Report 24674156 (Version 1)
Quarter: 2024Q4

REPORT INFORMATION
  Report Type: Spontaneous
  Country: FR (occurrence: FR)
  Receive Date: 20241128
  Receipt Date: 20241128
  Transmission Date: 20250114
  Serious: Yes (Other)
  Sender: GLAXOSMITHKLINE
  Company Number: None

PATIENT

DRUGS (4)
  1. LAMOTRIGINE [Interacting]
     Active Substance: LAMOTRIGINE
     Indication: Cyclothymic disorder
     Dosage: 50 MG, QD (50 MG/D)
     Route: 048
     Dates: start: 202306
  2. LYSERGIDE [Interacting]
     Active Substance: LYSERGIDE
     Indication: Product used for unknown indication
     Dosage: UNK
     Route: 065
     Dates: start: 202407, end: 202407
  3. TERALITHE [Interacting]
     Active Substance: LITHIUM CARBONATE
     Indication: Cyclothymic disorder
     Dosage: 1 DF, QD (1 CP/D)
     Route: 048
     Dates: start: 202404
  4. TRIMIPRAMINE [Interacting]
     Active Substance: TRIMIPRAMINE
     Indication: Cyclothymic disorder
     Dosage: 25 MG, QD (25 MG/D)
     Route: 048
     Dates: start: 202404

REACTIONS (4)
  - Panic attack [Recovered/Resolved]
  - Anxiety [Recovered/Resolved]
  - Paranoia [Recovered/Resolved]
  - Drug interaction [Unknown]

NARRATIVE: CASE EVENT DATE: 20240701
